FAERS Safety Report 17349419 (Version 2)
Quarter: 2020Q1

REPORT INFORMATION
  Report Type: Spontaneous
  Country: US (occurrence: US)
  Receive Date: 20200130
  Receipt Date: 20200209
  Transmission Date: 20200409
  Serious: Yes (Hospitalization)
  Sender: FDA-Public Use
  Company Number: US-JNJFOC-20200138366

PATIENT
  Age: 8 Year
  Sex: Female

DRUGS (1)
  1. CHILDRENS MOTRIN [Suspect]
     Active Substance: IBUPROFEN
     Indication: MALAISE
     Dosage: 1 ONCE
     Route: 048

REACTIONS (2)
  - Product use in unapproved indication [Unknown]
  - Adverse event [Recovered/Resolved]
